FAERS Safety Report 24250361 (Version 1)
Quarter: 2024Q3

REPORT INFORMATION
  Report Type: Spontaneous
  Country: US (occurrence: None)
  Receive Date: 20240824
  Receipt Date: 20240824
  Transmission Date: 20241017
  Serious: Yes (Life-Threatening, Hospitalization, Disabling)
  Sender: Public
  Company Number: None

PATIENT
  Age: 52 Year
  Sex: Male
  Weight: 90 kg

DRUGS (3)
  1. SEROQUEL [Suspect]
     Active Substance: QUETIAPINE FUMARATE
     Indication: Agitation
     Dates: start: 20240731, end: 20240803
  2. ZOLOFT [Concomitant]
  3. LYRICA [Concomitant]
     Active Substance: PREGABALIN

REACTIONS (7)
  - Serotonin syndrome [None]
  - Prescribed overdose [None]
  - Irritability [None]
  - Heart rate increased [None]
  - Blood pressure increased [None]
  - Cerebrovascular accident [None]
  - Seizure like phenomena [None]

NARRATIVE: CASE EVENT DATE: 20240803
